FAERS Safety Report 10995707 (Version 1)
Quarter: 2015Q2

REPORT INFORMATION
  Report Type: Report from Study
  Country: US (occurrence: US)
  Receive Date: 20150407
  Receipt Date: 20150407
  Transmission Date: 20150821
  Serious: Yes (Hospitalization, Disabling, Other)
  Sender: FDA-Public Use
  Company Number: US-ASTRAZENECA-2015SE28793

PATIENT
  Age: 68 Year
  Sex: Female

DRUGS (14)
  1. AZD5363 [Suspect]
     Active Substance: INVESTIGATIONAL PRODUCT
     Indication: NEOPLASM MALIGNANT
     Route: 048
     Dates: start: 20150213
  2. AZD5363 [Suspect]
     Active Substance: INVESTIGATIONAL PRODUCT
     Indication: NEOPLASM MALIGNANT
     Route: 048
     Dates: start: 20150214
  3. AZD5363 [Suspect]
     Active Substance: INVESTIGATIONAL PRODUCT
     Indication: NEOPLASM MALIGNANT
     Route: 048
     Dates: start: 20150221
  4. AZD5363 [Suspect]
     Active Substance: INVESTIGATIONAL PRODUCT
     Indication: NEOPLASM MALIGNANT
     Route: 048
     Dates: start: 20150223
  5. AZD5363 [Suspect]
     Active Substance: INVESTIGATIONAL PRODUCT
     Indication: NEOPLASM MALIGNANT
     Route: 048
     Dates: start: 20150215
  6. AZD5363 [Suspect]
     Active Substance: INVESTIGATIONAL PRODUCT
     Indication: NEOPLASM MALIGNANT
     Route: 048
     Dates: start: 20150220
  7. AZD5363 [Suspect]
     Active Substance: INVESTIGATIONAL PRODUCT
     Indication: NEOPLASM MALIGNANT
     Route: 048
     Dates: start: 20150221
  8. AZD5363 [Suspect]
     Active Substance: INVESTIGATIONAL PRODUCT
     Indication: NEOPLASM MALIGNANT
     Route: 048
     Dates: start: 20150222
  9. AZD5363 [Suspect]
     Active Substance: INVESTIGATIONAL PRODUCT
     Indication: NEOPLASM MALIGNANT
     Route: 048
     Dates: start: 20150214
  10. AZD5363 [Suspect]
     Active Substance: INVESTIGATIONAL PRODUCT
     Indication: NEOPLASM MALIGNANT
     Route: 048
     Dates: start: 20150215
  11. AZD5363 [Suspect]
     Active Substance: INVESTIGATIONAL PRODUCT
     Indication: NEOPLASM MALIGNANT
     Route: 048
     Dates: start: 20150216
  12. ANASTRAZOLE [Suspect]
     Active Substance: ANASTROZOLE
     Route: 065
  13. AZD5363 [Suspect]
     Active Substance: INVESTIGATIONAL PRODUCT
     Indication: NEOPLASM MALIGNANT
     Route: 048
     Dates: start: 20150214
  14. AZD5363 [Suspect]
     Active Substance: INVESTIGATIONAL PRODUCT
     Indication: NEOPLASM MALIGNANT
     Route: 048
     Dates: start: 20150216

REACTIONS (1)
  - Acute hepatic failure [Not Recovered/Not Resolved]

NARRATIVE: CASE EVENT DATE: 20150321
